FAERS Safety Report 8883823 (Version 1)
Quarter: 2012Q4

REPORT INFORMATION
  Report Type: 
  Country: CN (occurrence: CN)
  Receive Date: 20121102
  Receipt Date: 20121102
  Transmission Date: 20130627
  Serious: Yes (Death)
  Sender: FDA-Public Use
  Company Number: CN-ROCHE-1151006

PATIENT
  Age: 59 Year
  Sex: Female
  Weight: 75 kg

DRUGS (2)
  1. ROCEPHIN [Suspect]
     Indication: LUNG INFECTION
     Route: 041
     Dates: start: 20121028, end: 20121028
  2. SODIUM NITROPRUSSIDE [Concomitant]
     Indication: LUNG INFECTION

REACTIONS (2)
  - Anaphylactic shock [Fatal]
  - Multi-organ failure [Fatal]
